FAERS Safety Report 7530665-7 (Version None)
Quarter: 2011Q2

REPORT INFORMATION
  Report Type: 
  Country: None (occurrence: None)
  Receive Date: 20110607
  Receipt Date: 20110602
  Transmission Date: 20111010
  Serious: Yes (Other)
  Sender: FDA-Public Use
  Company Number: US-ABBOTT-11P-163-0710341-00

PATIENT
  Sex: Female
  Weight: 88.53 kg

DRUGS (5)
  1. HUMIRA [Suspect]
     Indication: CHORIORETINOPATHY
     Dates: start: 20090101, end: 20100501
  2. ATENOLOL [Concomitant]
     Indication: HYPERTENSION
     Dosage: 50MG DAILY
  3. BENAZAPRIL [Concomitant]
     Indication: HYPERTENSION
     Dosage: 20MG DAILY
  4. VERAPAMIL [Concomitant]
     Indication: HYPERTENSION
     Dosage: 120MG DAILY
  5. HUMIRA [Suspect]
     Indication: UVEITIS

REACTIONS (3)
  - VISION BLURRED [None]
  - EYE DISORDER [None]
  - EYE INFLAMMATION [None]
